FAERS Safety Report 8385079-7 (Version None)
Quarter: 2012Q2

REPORT INFORMATION
  Report Type: 
  Country: None (occurrence: None)
  Receive Date: 20120524
  Receipt Date: 20120514
  Transmission Date: 20120825
  Serious: No
  Sender: FDA-Public Use
  Company Number: CHPA2012US010313

PATIENT
  Sex: Male

DRUGS (1)
  1. PREVACID 24 HR [Suspect]
     Dosage: UNK, UNK
     Route: 065

REACTIONS (2)
  - NO ADVERSE EVENT [None]
  - OFF LABEL USE [None]
